FAERS Safety Report 7142194-3 (Version None)
Quarter: 2010Q4

REPORT INFORMATION
  Report Type: 
  Country: None (occurrence: None)
  Receive Date: 20101112
  Receipt Date: 20101012
  Transmission Date: 20110411
  Serious: No
  Sender: FDA-Public Use
  Company Number: 1000016828

PATIENT
  Age: 45 Year
  Sex: Female

DRUGS (8)
  1. SAVELLA [Suspect]
     Indication: FIBROMYALGIA
     Dosage: ORAL
     Route: 048
     Dates: start: 20100406, end: 20100401
  2. CRESTOR [Concomitant]
  3. TOPROL-XL [Concomitant]
  4. LEXAPRO (ESCITALOPRAM OXALATE) (ESCITALOPRAM OXALATE) [Concomitant]
  5. BENICAR [Concomitant]
  6. ALBUTEROL (ALBUTEROL) (ALBUTEROL) [Concomitant]
  7. LASIX [Concomitant]
  8. XANAX [Concomitant]

REACTIONS (4)
  - ANXIETY [None]
  - CHEST PAIN [None]
  - DYSPNOEA [None]
  - PALPITATIONS [None]
